FAERS Safety Report 9454579 (Version 2)
Quarter: 2014Q3

REPORT INFORMATION
  Report Type: Spontaneous
  Country: US (occurrence: None)
  Receive Date: 20130808
  Receipt Date: 20140804
  Transmission Date: 20150326
  Serious: Yes (Life-Threatening)
  Sender: FDA-Public Use
  Company Number: 1713747-2013-99926

PATIENT
  Age: 63 Year
  Sex: Male
  Weight: 83.6 kg

DRUGS (17)
  1. FRESENIUS 2008K2 MACHINE [Concomitant]
  2. LABETOLOL [Concomitant]
  3. LEVOTHYROXINE [Concomitant]
     Active Substance: LEVOTHYROXINE
  4. BISACODYL. [Concomitant]
     Active Substance: BISACODYL
  5. PLAVIX [Concomitant]
     Active Substance: CLOPIDOGREL BISULFATE
  6. PHENADOZ [Concomitant]
     Active Substance: PROMETHAZINE HYDROCHLORIDE
  7. 0.9% SODIUM CHLORIDE INJECTION, USP IN MINI-BAG PLUS CONTAINER [Suspect]
     Active Substance: SODIUM CHLORIDE
     Indication: FLUID REPLACEMENT
     Dosage: 100-300ML, PRN IV, (42)
     Route: 042
     Dates: start: 20130624
  8. NIACIN. [Concomitant]
     Active Substance: NIACIN
  9. FERRLECIT [Concomitant]
     Active Substance: SODIUM FERRIC GLUCONATE COMPLEX
  10. FRESENIUS DIALYZER [Concomitant]
  11. FRESENIUS COMBISET [Concomitant]
  12. FERROUS SULFATE [Concomitant]
     Active Substance: FERROUS SULFATE\FERROUS SULFATE, DRIED
  13. FRESENIUS COLLECTIVE CONCENTRATE - NATURALYTE [Concomitant]
  14. LASIX [Concomitant]
     Active Substance: FUROSEMIDE
  15. LANTUS [Concomitant]
     Active Substance: INSULIN GLARGINE
  16. TARAZOSIN [Concomitant]
  17. EPOGEN [Concomitant]
     Active Substance: ERYTHROPOIETIN

REACTIONS (5)
  - Loss of consciousness [None]
  - Hypoxia [None]
  - Resuscitation [None]
  - Unresponsive to stimuli [None]
  - Pulseless electrical activity [None]

NARRATIVE: CASE EVENT DATE: 20130624
